FAERS Safety Report 10223024 (Version 1)
Quarter: 2014Q2

REPORT INFORMATION
  Report Type: Report from Study
  Country: US (occurrence: US)
  Receive Date: 20140607
  Receipt Date: 20140607
  Transmission Date: 20141212
  Serious: Yes (Death, Hospitalization)
  Sender: FDA-Public Use
  Company Number: PHHO2014US008164

PATIENT
  Age: 61 Year
  Sex: Male

DRUGS (3)
  1. SANDOSTATIN LAR [Suspect]
     Indication: NEUROENDOCRINE CARCINOMA
     Dosage: 20 MG, [ON DAY 1]
     Route: 030
     Dates: start: 20120227, end: 20131209
  2. AVASTIN [Suspect]
     Indication: NEUROENDOCRINE CARCINOMA
     Dosage: 10 MG/KG, [OVER 30-90 MINUTES ON DAY 1 AND 15]
     Route: 042
     Dates: start: 20120227, end: 20131224
  3. AFINITOR [Suspect]
     Indication: NEUROENDOCRINE CARCINOMA
     Dosage: 10 MG, QD
     Route: 048
     Dates: start: 20120227, end: 20130613

REACTIONS (1)
  - Hepatic encephalopathy [Fatal]
